FAERS Safety Report 8766045 (Version 3)
Quarter: 2012Q4

REPORT INFORMATION
  Report Type: 
  Country: IE (occurrence: IE)
  Receive Date: 20120904
  Receipt Date: 20121029
  Transmission Date: 20130627
  Serious: Yes (Hospitalization)
  Sender: FDA-Public Use
  Company Number: IE-009507513-1208IRL012427

PATIENT
  Age: 30 Year
  Sex: Male

DRUGS (8)
  1. SYCREST [Suspect]
     Indication: BIPOLAR DISORDER
     Dosage: 20 mg, bid
     Route: 060
     Dates: start: 20120720, end: 20120723
  2. RISPERIDONE [Concomitant]
     Indication: PSYCHOTIC DISORDER
     Dosage: UNK UNK, qd
     Route: 048
  3. LITHIUM [Concomitant]
  4. LAMOTRIGINE [Concomitant]
     Indication: BIPOLAR DISORDER
     Dosage: 125 mg, UNK
     Route: 048
  5. EPILIM CHRONO [Concomitant]
     Indication: BIPOLAR DISORDER
     Dosage: 1200 mg, qd
     Route: 048
  6. PRIADEL [Concomitant]
     Indication: BIPOLAR DISORDER
     Dosage: Daily x 2 ( 1/24)
     Route: 048
  7. ZOTON [Concomitant]
     Dosage: 30 mg, qd
     Route: 048
  8. AKINETON TABLETS [Concomitant]
     Dosage: 2 mg, qd
     Route: 048

REACTIONS (5)
  - Back pain [Recovered/Resolved]
  - Pain [Recovered/Resolved]
  - Pyrexia [Recovered/Resolved]
  - Muscle twitching [Recovered/Resolved]
  - Muscle spasms [Recovered/Resolved]
